FAERS Safety Report 9722929 (Version 1)
Quarter: 2013Q4

REPORT INFORMATION
  Report Type: Spontaneous
  Country: US (occurrence: None)
  Receive Date: 20131127
  Receipt Date: 20131127
  Transmission Date: 20140711
  Serious: Yes (Other)
  Sender: FDA-Public Use
  Company Number: None

PATIENT
  Age: 64 Year
  Sex: Male

DRUGS (1)
  1. FLUOROURACIL [Suspect]
     Indication: HYPERKERATOSIS
     Dosage: 5 PERCENT DAILY FOR 4 WEEKS TOPICCALLY
     Route: 061
     Dates: start: 20131021, end: 20131121

REACTIONS (2)
  - Scab [None]
  - Ulcer haemorrhage [None]
